FAERS Safety Report 26140050 (Version 1)
Quarter: 2025Q4

REPORT INFORMATION
  Report Type: Report from Study
  Country: EU (occurrence: EU)
  Receive Date: 20251210
  Receipt Date: 20251210
  Transmission Date: 20260117
  Serious: Yes (Death)
  Sender: JOHNSON AND JOHNSON
  Company Number: EU-JNJFOC-20250528989

PATIENT

DRUGS (3)
  1. OPSUMIT [Suspect]
     Active Substance: MACITENTAN
     Indication: Skin ulcer
     Route: 048
  2. BOSENTAN [Suspect]
     Active Substance: BOSENTAN
     Indication: Skin ulcer
     Route: 048
  3. ASPIRIN [Concomitant]
     Active Substance: ASPIRIN
     Indication: Product used for unknown indication

REACTIONS (5)
  - Lung adenocarcinoma [Fatal]
  - Drug ineffective [Unknown]
  - Oedema peripheral [Unknown]
  - Palpitations [Unknown]
  - Pruritus [Unknown]
